FAERS Safety Report 4487790-7 (Version None)
Quarter: 2004Q4

REPORT INFORMATION
  Report Type: 
  Country: None (occurrence: None)
  Receive Date: 20041025
  Receipt Date: 20041017
  Transmission Date: 20050328
  Serious: Yes (Life-Threatening, Hospitalization)
  Sender: FDA-Public Use
  Company Number: 2004239419US

PATIENT

DRUGS (1)
  1. CELEBREX [Suspect]

REACTIONS (3)
  - HAEMORRHAGE [None]
  - RENAL FAILURE [None]
  - RENAL SURGERY [None]
